FAERS Safety Report 21513021 (Version 1)
Quarter: 2022Q4

REPORT INFORMATION
  Report Type: Spontaneous
  Country: US (occurrence: None)
  Receive Date: 20221026
  Receipt Date: 20221026
  Transmission Date: 20230112
  Serious: Yes (Other)
  Sender: FDA-Public Use
  Company Number: None

PATIENT
  Age: 52 Year
  Sex: Female
  Weight: 52.2 kg

DRUGS (15)
  1. IPRATROPIUM BROMIDE [Suspect]
     Active Substance: IPRATROPIUM BROMIDE
     Indication: Product used for unknown indication
     Dosage: FREQUENCY : 4 TIMES A DAY;?
     Route: 055
     Dates: start: 20221024, end: 20221024
  2. VENTOLIN HFA [Concomitant]
  3. LEVOTHYROXINE [Concomitant]
     Active Substance: LEVOTHYROXINE
  4. CLONAZEPAM [Concomitant]
     Active Substance: CLONAZEPAM
  5. HYDROXYZINE [Concomitant]
     Active Substance: HYDROXYZINE HYDROCHLORIDE
  6. CROMOLYN [Concomitant]
     Active Substance: CROMOLYN
  7. LORATADINE [Concomitant]
     Active Substance: LORATADINE
  8. VITAMINS [Concomitant]
     Active Substance: VITAMINS
  9. VITAMIN C [Concomitant]
     Active Substance: ASCORBIC ACID
  10. MAGNESIUM OXIDE [Concomitant]
     Active Substance: MAGNESIUM OXIDE
  11. CALCIUM CARBONATE [Concomitant]
     Active Substance: CALCIUM CARBONATE
  12. TYLENOL [Concomitant]
     Active Substance: ACETAMINOPHEN
  13. IBUPROFEN [Concomitant]
     Active Substance: IBUPROFEN
  14. FAMOTIDINE [Concomitant]
     Active Substance: FAMOTIDINE
  15. Generic Benadryl Allergy (diphenhydramine) [Concomitant]

REACTIONS (16)
  - Headache [None]
  - Rhinalgia [None]
  - Sinus pain [None]
  - Paraesthesia [None]
  - Facial pain [None]
  - Ear pain [None]
  - Nausea [None]
  - Eye pain [None]
  - Mydriasis [None]
  - Eye irritation [None]
  - Vision blurred [None]
  - Photophobia [None]
  - Nasal dryness [None]
  - Headache [None]
  - Myalgia [None]
  - Dizziness [None]

NARRATIVE: CASE EVENT DATE: 20221024
